FAERS Safety Report 6666417-X (Version None)
Quarter: 2010Q1

REPORT INFORMATION
  Report Type: 
  Country: None (occurrence: None)
  Receive Date: 20100331
  Receipt Date: 20100322
  Transmission Date: 20100710
  Serious: Yes (Death)
  Sender: FDA-Public Use
  Company Number: 2010S1000024

PATIENT
  Age: 79 Year
  Sex: Male

DRUGS (2)
  1. INOMAX [Suspect]
     Indication: PULMONARY HYPERTENSION
     Dosage: 80 PPM; CONT; INH
     Route: 025
     Dates: start: 20100321, end: 20100322
  2. INOMAX [Suspect]
     Dosage: 80 PPM; CONT; INH
     Route: 025
     Dates: start: 20100321, end: 20100322

REACTIONS (5)
  - CARDIO-RESPIRATORY ARREST [None]
  - DEVICE MALFUNCTION [None]
  - HYPOTENSION [None]
  - MEDICAL DEVICE COMPLICATION [None]
  - OXYGEN SATURATION DECREASED [None]
